FAERS Safety Report 20752290 (Version 13)
Quarter: 2023Q1

REPORT INFORMATION
  Report Type: Report from Study
  Country: CN (occurrence: None)
  Receive Date: 20220426
  Receipt Date: 20230227
  Transmission Date: 20230418
  Serious: Yes (Hospitalization)
  Sender: FDA-Public Use
  Company Number: CN-ROCHE-3072722

PATIENT
  Age: 75 Year
  Sex: Male
  Weight: 63.6 kg

DRUGS (66)
  1. ATEZOLIZUMAB [Suspect]
     Active Substance: ATEZOLIZUMAB
     Indication: Non-small cell lung cancer stage IV
     Dosage: DATE OF MOST RECENT DOSE OF BLINDED ATEZOLIZUMAB PRIOR TO AE 14/JAN/2022?DATE OF MOST RECENT DOSE OF
     Route: 041
     Dates: start: 20201111
  2. BEVACIZUMAB [Suspect]
     Active Substance: BEVACIZUMAB
     Indication: Non-small cell lung cancer stage IV
     Dosage: DATE OF MOST RECENT DOSE OF BEVACIZUMAB (1000 MG) PRIOR TO AE AND SAE 24/DEC/2021
     Route: 042
     Dates: start: 20201111
  3. CARBOPLATIN [Suspect]
     Active Substance: CARBOPLATIN
     Indication: Non-small cell lung cancer stage IV
     Dosage: DATE OF MOST RECENT DOSE OF CARBOPLATIN (1200 MG) PRIOR TO AE AND SAE: 19/JAN/2021
     Route: 042
     Dates: start: 20201111
  4. PEMETREXED [Suspect]
     Active Substance: PEMETREXED
     Indication: Non-small cell lung cancer stage IV
     Dosage: DATE OF MOST RECENT DOSE OF PEMETREXED (750 MG) PRIOR TO AE: 14/JAN/2022?DATE OF MOST RECENT DOSE OF
     Route: 042
     Dates: start: 20201111
  5. OLMESARTAN MEDOXOMIL [Concomitant]
     Active Substance: OLMESARTAN MEDOXOMIL
     Indication: Proteinuria
     Dosage: MEDICATION INDICATION PROTEINURIA
     Dates: start: 20210708
  6. PHOSPHOLIPID [Concomitant]
     Active Substance: PHOSPHOLIPID
     Dates: start: 20220113, end: 20220113
  7. PHOSPHOLIPID [Concomitant]
     Active Substance: PHOSPHOLIPID
     Dates: start: 20220209, end: 20220209
  8. PHOSPHOLIPID [Concomitant]
     Active Substance: PHOSPHOLIPID
     Dates: start: 20220209, end: 20220210
  9. DEXAMETHASONE ACETATE [Concomitant]
     Active Substance: DEXAMETHASONE ACETATE
     Route: 048
     Dates: start: 20220115, end: 20220117
  10. DEXAMETHASONE ACETATE [Concomitant]
     Active Substance: DEXAMETHASONE ACETATE
     Dosage: STOP VOMITING
     Route: 048
     Dates: start: 20220325, end: 20220330
  11. DEXAMETHASONE ACETATE [Concomitant]
     Active Substance: DEXAMETHASONE ACETATE
     Dosage: STOP VOMITING
     Route: 048
     Dates: start: 20220416, end: 20220418
  12. DEXAMETHASONE ACETATE [Concomitant]
     Active Substance: DEXAMETHASONE ACETATE
     Dosage: STOP VOMITING
     Route: 048
     Dates: start: 20220508, end: 20220513
  13. DEXAMETHASONE ACETATE [Concomitant]
     Active Substance: DEXAMETHASONE ACETATE
     Dosage: STOP VOMITING
     Route: 046
     Dates: start: 20220709, end: 20220714
  14. DEXAMETHASONE ACETATE [Concomitant]
     Active Substance: DEXAMETHASONE ACETATE
     Dosage: STOP VOMITING
     Route: 048
     Dates: start: 20220730, end: 20220804
  15. DEXAMETHASONE ACETATE [Concomitant]
     Active Substance: DEXAMETHASONE ACETATE
     Route: 048
     Dates: start: 20220820, end: 20220825
  16. DEXAMETHASONE ACETATE [Concomitant]
     Active Substance: DEXAMETHASONE ACETATE
     Dosage: STOP VOMITING
     Route: 048
     Dates: start: 20220910, end: 20220915
  17. DEXAMETHASONE ACETATE [Concomitant]
     Active Substance: DEXAMETHASONE ACETATE
     Dosage: ANTIEMETIC
     Route: 048
     Dates: start: 20221001, end: 20221006
  18. DEXAMETHASONE ACETATE [Concomitant]
     Active Substance: DEXAMETHASONE ACETATE
     Dosage: ANTIEMETIC
     Route: 048
     Dates: start: 20221026, end: 20221031
  19. DEXAMETHASONE ACETATE [Concomitant]
     Active Substance: DEXAMETHASONE ACETATE
     Dosage: MEDICATION INDICATION ANTI-NAUSEA
     Route: 048
     Dates: start: 20220304, end: 20220306
  20. DEXAMETHASONE ACETATE [Concomitant]
     Active Substance: DEXAMETHASONE ACETATE
     Dosage: ANTIEMETIC
     Route: 048
     Dates: start: 20221116, end: 20221121
  21. DEXAMETHASONE ACETATE [Concomitant]
     Active Substance: DEXAMETHASONE ACETATE
     Dosage: ANTIEMETIC
     Route: 048
     Dates: start: 20221214, end: 20221219
  22. DEXAMETHASONE ACETATE [Concomitant]
     Active Substance: DEXAMETHASONE ACETATE
     Dosage: ANTIEMETIC
     Route: 048
     Dates: start: 20230106, end: 20230111
  23. DEXAMETHASONE ACETATE [Concomitant]
     Active Substance: DEXAMETHASONE ACETATE
     Dates: start: 20230130, end: 20230204
  24. OMEPRAZOLE [Concomitant]
     Active Substance: OMEPRAZOLE
     Route: 048
     Dates: start: 20220115, end: 20220117
  25. OMEPRAZOLE [Concomitant]
     Active Substance: OMEPRAZOLE
     Dates: start: 20220910, end: 20220913
  26. OMEPRAZOLE [Concomitant]
     Active Substance: OMEPRAZOLE
     Dates: start: 20221001, end: 20221003
  27. OMEPRAZOLE [Concomitant]
     Active Substance: OMEPRAZOLE
     Dates: start: 20221026, end: 20221028
  28. OMEPRAZOLE [Concomitant]
     Active Substance: OMEPRAZOLE
     Dates: start: 20220304, end: 20220306
  29. OMEPRAZOLE [Concomitant]
     Active Substance: OMEPRAZOLE
     Dates: start: 20221116, end: 20221118
  30. FOLIC ACID [Concomitant]
     Active Substance: FOLIC ACID
     Dates: start: 20220113, end: 20220119
  31. FOLIC ACID [Concomitant]
     Active Substance: FOLIC ACID
     Dates: start: 20220325, end: 20220328
  32. FOLIC ACID [Concomitant]
     Active Substance: FOLIC ACID
     Dates: start: 20220416, end: 20220419
  33. FOLIC ACID [Concomitant]
     Active Substance: FOLIC ACID
     Dates: start: 20220508, end: 20220511
  34. FOLIC ACID [Concomitant]
     Active Substance: FOLIC ACID
     Dates: start: 20220619, end: 20220622
  35. FOLIC ACID [Concomitant]
     Active Substance: FOLIC ACID
     Dates: start: 20220709, end: 20220712
  36. FOLIC ACID [Concomitant]
     Active Substance: FOLIC ACID
     Dates: start: 20220730, end: 20220802
  37. FOLIC ACID [Concomitant]
     Active Substance: FOLIC ACID
     Dates: start: 20220909, end: 20220913
  38. FOLIC ACID [Concomitant]
     Active Substance: FOLIC ACID
     Dates: start: 20220930, end: 20221006
  39. FOLIC ACID [Concomitant]
     Active Substance: FOLIC ACID
     Dates: start: 20221024, end: 20221029
  40. FOLIC ACID [Concomitant]
     Active Substance: FOLIC ACID
     Dates: start: 20220209, end: 20220215
  41. FOLIC ACID [Concomitant]
     Active Substance: FOLIC ACID
     Dates: start: 20220302, end: 20220302
  42. FOLIC ACID [Concomitant]
     Active Substance: FOLIC ACID
     Dates: start: 20221114, end: 20221119
  43. FOLIC ACID [Concomitant]
     Active Substance: FOLIC ACID
     Dates: start: 20221212, end: 20221219
  44. LOSARTAN POTASSIUM [Concomitant]
     Active Substance: LOSARTAN POTASSIUM
     Dates: start: 20220225
  45. FUROSEMIDE [Concomitant]
     Active Substance: FUROSEMIDE
     Dates: start: 20220311, end: 20220324
  46. SPIRONOLACTONE [Concomitant]
     Active Substance: SPIRONOLACTONE
     Dates: start: 20220311, end: 20220324
  47. METFORMIN HYDROCHLORIDE [Concomitant]
     Active Substance: METFORMIN HYDROCHLORIDE
     Dates: start: 2016
  48. CEFUROXIME [Concomitant]
     Active Substance: CEFUROXIME
     Route: 048
     Dates: start: 20220416, end: 20220422
  49. DEXAMETHASONE SODIUM PHOSPHATE [Concomitant]
     Active Substance: DEXAMETHASONE SODIUM PHOSPHATE
     Indication: Vomiting
     Route: 042
     Dates: start: 20220909, end: 20220909
  50. DEXAMETHASONE SODIUM PHOSPHATE [Concomitant]
     Active Substance: DEXAMETHASONE SODIUM PHOSPHATE
     Route: 042
     Dates: start: 20220930, end: 20220930
  51. DEXAMETHASONE SODIUM PHOSPHATE [Concomitant]
     Active Substance: DEXAMETHASONE SODIUM PHOSPHATE
     Dosage: SUBSEQUENT ON 15-NOV-2022, 13-DEC-2022, 05-JAN-2023, 29-JAN-2023
     Route: 042
     Dates: start: 20221025, end: 20221025
  52. OMEPRAZOLE SODIUM [Concomitant]
     Active Substance: OMEPRAZOLE SODIUM
     Dates: start: 20220909, end: 20220909
  53. OMEPRAZOLE SODIUM [Concomitant]
     Active Substance: OMEPRAZOLE SODIUM
     Dates: start: 20220930, end: 20220930
  54. OMEPRAZOLE SODIUM [Concomitant]
     Active Substance: OMEPRAZOLE SODIUM
     Dosage: SUBSEQUENT DOSING ON :15-NOV-2022, 13-DEC-2022, 05-JAN-2023, 29-JAN-2023
     Dates: start: 20221025, end: 20221025
  55. TROPISETRON HYDROCHLORIDE [Concomitant]
     Active Substance: TROPISETRON HYDROCHLORIDE
     Indication: Vomiting
     Dates: start: 20220909, end: 20220909
  56. TROPISETRON HYDROCHLORIDE [Concomitant]
     Active Substance: TROPISETRON HYDROCHLORIDE
     Dates: start: 20220930, end: 20220930
  57. TROPISETRON HYDROCHLORIDE [Concomitant]
     Active Substance: TROPISETRON HYDROCHLORIDE
     Dosage: SUBSEQUENT ON 15-NOV-2022, 13-DEC-2022, 05-JAN-2023, 29-JAN-2023
     Dates: start: 20221025, end: 20221025
  58. APREPITANT [Concomitant]
     Active Substance: APREPITANT
     Indication: Vomiting
     Dates: start: 20220910, end: 20220910
  59. APREPITANT [Concomitant]
     Active Substance: APREPITANT
     Dates: start: 20220912, end: 20220913
  60. APREPITANT [Concomitant]
     Active Substance: APREPITANT
     Dates: start: 20221001, end: 20221003
  61. ONDANSETRON HYDROCHLORIDE [Concomitant]
     Active Substance: ONDANSETRON HYDROCHLORIDE
     Dates: start: 20221001, end: 20221006
  62. VITAMIN B12 [Concomitant]
     Active Substance: CYANOCOBALAMIN
     Indication: Vitamin supplementation
     Dates: start: 20220210, end: 20220210
  63. VITAMIN B12 [Concomitant]
     Active Substance: CYANOCOBALAMIN
     Dates: start: 20220415, end: 20220415
  64. VITAMIN B12 [Concomitant]
     Active Substance: CYANOCOBALAMIN
     Dates: start: 20220819, end: 20220819
  65. VITAMIN B12 [Concomitant]
     Active Substance: CYANOCOBALAMIN
     Dates: start: 20220618, end: 20220618
  66. CEFTAZIDIME [Concomitant]
     Active Substance: CEFTAZIDIME
     Dates: start: 20220407, end: 20220413

REACTIONS (1)
  - Cellulitis [Not Recovered/Not Resolved]

NARRATIVE: CASE EVENT DATE: 20220305
